FAERS Safety Report 18185216 (Version 2)
Quarter: 2021Q3

REPORT INFORMATION
  Report Type: Spontaneous
  Country: US (occurrence: US)
  Receive Date: 20200824
  Receipt Date: 20210920
  Transmission Date: 20211014
  Serious: No
  Sender: FDA-Public Use
  Company Number: US-CELLTRION INC.-2020US018670

PATIENT

DRUGS (4)
  1. INFLECTRA [Suspect]
     Active Substance: INFLIXIMAB-DYYB
     Indication: CROHN^S DISEASE
     Dosage: DOSE UNKNOWN, EVERY 8 WEEKS (5?6 INFUSIONS)
     Route: 042
     Dates: start: 2019, end: 2020
  2. INFLECTRA [Suspect]
     Active Substance: INFLIXIMAB-DYYB
     Dosage: SECOND INFUSION
     Route: 042
  3. INFLECTRA [Suspect]
     Active Substance: INFLIXIMAB-DYYB
     Indication: HAEMATOCHEZIA
     Dosage: FIRST INFUSION
     Route: 042
  4. INFLECTRA [Suspect]
     Active Substance: INFLIXIMAB-DYYB
     Dosage: THIRD INFUSION
     Route: 042
     Dates: end: 2020

REACTIONS (4)
  - Drug ineffective [Unknown]
  - Malaise [Unknown]
  - Confusional state [Unknown]
  - Weight increased [Unknown]
